FAERS Safety Report 18073542 (Version 1)
Quarter: 2020Q3

REPORT INFORMATION
  Report Type: Spontaneous
  Country: JP (occurrence: JP)
  Receive Date: 20200727
  Receipt Date: 20200727
  Transmission Date: 20201103
  Serious: Yes (Other)
  Sender: FDA-Public Use
  Company Number: JP-HQ SPECIALTY-JP-2020INT000082

PATIENT

DRUGS (3)
  1. CISPLATIN. [Suspect]
     Active Substance: CISPLATIN
     Indication: NASAL SINUS CANCER
     Dosage: 40 MG/M2, WEEKLY, OVER A 5?H PERIOD, 8?10 COURSES, (MAXILLARY ARTERY)
     Route: 013
  2. RADIOTHERAPY [Suspect]
     Active Substance: RADIATION THERAPY
     Indication: NASAL SINUS CANCER
     Dosage: TOTAL DOSE OF 70 GY, DELIVERED IN 35 FRACTIONS
     Route: 050
  3. SODIUM THIOSULFATE [Suspect]
     Active Substance: SODIUM THIOSULFATE
     Indication: CHEMOTHERAPY TOXICITY ATTENUATION
     Dosage: 4 G/10 MG OF CISPLATIN, OVER A 5?H PERIOD, 8?10 COURSES
     Route: 042

REACTIONS (1)
  - Hypernatraemia [Unknown]
